FAERS Safety Report 9780779 (Version 1)
Quarter: 2013Q4

REPORT INFORMATION
  Report Type: Spontaneous
  Country: MX (occurrence: MX)
  Receive Date: 20131224
  Receipt Date: 20131224
  Transmission Date: 20140711
  Serious: Yes (Other)
  Sender: FDA-Public Use
  Company Number: MX-AMGEN-MEXSP2013090070

PATIENT
  Age: 64 Year
  Sex: Male

DRUGS (6)
  1. NEUPOGEN [Suspect]
     Indication: COLONY STIMULATING FACTOR THERAPY
     Dosage: CYCLE 4 : 5 DOSES ADMINISTERED DAY 1-5 (300 MUG)
     Route: 065
  2. RITUXIMAB [Suspect]
     Indication: PRODUCT USED FOR UNKNOWN INDICATION
     Dosage: DAY 1 EVERY 4 WEEKS, 375 MG
     Route: 065
  3. FLUDARABINE /01004602/ [Suspect]
     Indication: PRODUCT USED FOR UNKNOWN INDICATION
     Dosage: DAY 2-4 EVERY 4 WEEKS, 35 MG
     Route: 065
  4. CYCLOPHOSPHAMIDE [Concomitant]
     Dosage: UNK
  5. VINCRISTINE [Concomitant]
     Dosage: UNK
  6. PREDNISONE [Concomitant]
     Dosage: UNK

REACTIONS (2)
  - Febrile neutropenia [Unknown]
  - Neutropenia [Unknown]
